FAERS Safety Report 6408305-X (Version None)
Quarter: 2009Q4

REPORT INFORMATION
  Report Type: 
  Country: None (occurrence: None)
  Receive Date: 20091021
  Receipt Date: 20091012
  Transmission Date: 20100525
  Serious: Yes (Hospitalization, Other)
  Sender: FDA-Public Use
  Company Number: DK-NOVOPROD-289958

PATIENT
  Sex: Female
  Weight: 2.014 kg

DRUGS (6)
  1. LEVEMIR [Suspect]
     Indication: DRUG EXPOSURE DURING PREGNANCY
     Dosage: 44 IU, QD AT WEEK 11
     Route: 064
  2. LEVEMIR [Suspect]
     Dosage: 56 IU, QD AT WEEK 34
     Route: 064
  3. NOVORAPID [Suspect]
     Indication: DRUG EXPOSURE DURING PREGNANCY
     Dosage: 19 IU, QD AT WEEK 11
     Route: 064
  4. NOVORAPID [Suspect]
     Dosage: 12 IU, QD AT WEEK 34
     Route: 064
  5. TRANDATE [Concomitant]
     Indication: DRUG EXPOSURE DURING PREGNANCY
     Dosage: 100 MG, QD
     Route: 064
     Dates: start: 20081009, end: 20081103
  6. METYLDOPA [Concomitant]
     Dosage: 750 MG, QD
     Route: 050
     Dates: start: 20081009

REACTIONS (7)
  - DRUG EXPOSURE DURING PREGNANCY [None]
  - FOETAL DISTRESS SYNDROME [None]
  - JAUNDICE NEONATAL [None]
  - MATERNAL DRUGS AFFECTING FOETUS [None]
  - NEONATAL RESPIRATORY DISTRESS SYNDROME [None]
  - PRE-ECLAMPSIA [None]
  - PREMATURE BABY [None]
